FAERS Safety Report 11159094 (Version 1)
Quarter: 2015Q2

REPORT INFORMATION
  Report Type: Spontaneous
  Country: JP (occurrence: JP)
  Receive Date: 20150603
  Receipt Date: 20150603
  Transmission Date: 20150821
  Serious: Yes (Death, Hospitalization, Other)
  Sender: FDA-Public Use
  Company Number: JP-BAXTER-2015BAX023375

PATIENT
  Age: 36 Year
  Sex: Male

DRUGS (17)
  1. BLEOMYCIN [Suspect]
     Active Substance: BLEOMYCIN SULFATE
     Indication: TESTIS CANCER
     Dosage: 1ST COURSE, X2 DOSES, TOTAL DOSE 60 MG
     Route: 042
     Dates: start: 20150203, end: 20150210
  2. ENDOXAN 500MG [Suspect]
     Active Substance: CYCLOPHOSPHAMIDE
     Indication: INTERSTITIAL LUNG DISEASE
     Route: 042
     Dates: start: 20150507
  3. CISPLATIN. [Suspect]
     Active Substance: CISPLATIN
     Dosage: X5 DOSES, TOTAL DOSE 180 MILLIGRAMS
     Route: 042
     Dates: start: 20150203, end: 20150207
  4. CISPLATIN. [Suspect]
     Active Substance: CISPLATIN
     Dosage: X10 DOSES, TOTAL DOSE 180 MILLIGRAMS
     Route: 042
     Dates: start: 20150303, end: 20150403
  5. TRICHLORMETHIAZIDE [Concomitant]
     Active Substance: TRICHLORMETHIAZIDE
     Indication: HYPERTENSION
     Route: 048
     Dates: start: 20150324
  6. DIOVAN [Concomitant]
     Active Substance: VALSARTAN
     Indication: HYPERTENSION
     Route: 048
     Dates: start: 20150210, end: 20150505
  7. BLEOMYCIN [Suspect]
     Active Substance: BLEOMYCIN SULFATE
     Dosage: 2ND COURSE, X3 DOSES, TOTAL DOSE 75 MG
     Route: 042
     Dates: start: 20150302
  8. BLEOMYCIN [Suspect]
     Active Substance: BLEOMYCIN SULFATE
     Dosage: 3RD COURSE, X2 DOSES, TOTAL DOSE 50 MILLIGRAMS
     Route: 042
     Dates: start: 20150330, end: 20150406
  9. SPIRONOLACTONE. [Concomitant]
     Active Substance: SPIRONOLACTONE
     Indication: HYPERTENSION
     Route: 048
     Dates: start: 20150113, end: 20150502
  10. FEBURIC [Concomitant]
     Active Substance: FEBUXOSTAT
     Indication: HYPERURICAEMIA
     Route: 048
     Dates: start: 20150113
  11. CELLTOP 100 MG/5 ML, SOLUTION INJECTABLE POUR PERFUSION [Suspect]
     Active Substance: ETOPOSIDE
     Dosage: X5 DOSES, TOTAL DOSE 900 MILLIGRAMS
     Route: 042
     Dates: start: 20150203, end: 20150207
  12. CISPLATIN. [Suspect]
     Active Substance: CISPLATIN
     Indication: TESTIS CANCER
     Route: 042
     Dates: start: 20150203
  13. FUROSEMIDE. [Concomitant]
     Active Substance: FUROSEMIDE
     Indication: HYPERTENSION
     Route: 048
     Dates: start: 20150218, end: 20150502
  14. ATELEC [Concomitant]
     Active Substance: CILNIDIPINE
     Indication: HYPERTENSION
     Route: 048
     Dates: start: 20150113
  15. PACKED RED BLOOD CELL TRANSFUSION [Concomitant]
     Active Substance: HUMAN RED BLOOD CELL
     Indication: PRODUCT USED FOR UNKNOWN INDICATION
     Route: 065
     Dates: start: 20150316, end: 20150413
  16. CELLTOP 100 MG/5 ML, SOLUTION INJECTABLE POUR PERFUSION [Suspect]
     Active Substance: ETOPOSIDE
     Indication: TESTIS CANCER
     Dosage: THIRD CYCLE
     Route: 042
  17. CELLTOP 100 MG/5 ML, SOLUTION INJECTABLE POUR PERFUSION [Suspect]
     Active Substance: ETOPOSIDE
     Dosage: X10 DOSES, TOTAL DOSE 1500 MG
     Route: 042
     Dates: start: 20150303, end: 20150403

REACTIONS (8)
  - Gastrooesophageal reflux disease [Unknown]
  - Neutropenia [Unknown]
  - Interstitial lung disease [Fatal]
  - Loss of consciousness [Unknown]
  - Pleural effusion [Unknown]
  - Renal impairment [Unknown]
  - Neuropathy peripheral [Unknown]
  - Vomiting [Unknown]

NARRATIVE: CASE EVENT DATE: 20150426
